FAERS Safety Report 17806644 (Version 1)
Quarter: 2020Q2

REPORT INFORMATION
  Report Type: Spontaneous
  Country: US (occurrence: US)
  Receive Date: 20200519
  Receipt Date: 20200519
  Transmission Date: 20200714
  Serious: Yes (Other)
  Sender: FDA-Public Use
  Company Number: None

PATIENT
  Age: 45 Year
  Sex: Male
  Weight: 94.9 kg

DRUGS (13)
  1. BUMETANIDE 1MG INJ [Concomitant]
     Dates: start: 20200514
  2. POTASSIUM PHOSPHATE 15MMOL BOLUS [Concomitant]
     Dates: start: 20200514, end: 20200514
  3. CEFTRIAXONE 2G INJ [Concomitant]
     Dates: start: 20200509
  4. LACTATED RINGER INFUSION [Concomitant]
     Dates: start: 20200509
  5. PROPFOL INFUSION 40MCG/KG/MIN [Concomitant]
     Dates: start: 20200511
  6. IPRATROPIUM-ALBUTEROL NEB [Concomitant]
     Dates: start: 20200515
  7. BISACODYL SUPPOSITORY [Concomitant]
     Active Substance: BISACODYL
     Dates: start: 20200516, end: 20200516
  8. CHLORHEXIDINE 0.12% SWISH [Concomitant]
     Dates: start: 20200512
  9. ENOXAPARIN 100MG [Concomitant]
     Active Substance: ENOXAPARIN
     Dates: start: 20200509
  10. FENTANYL TRANSDERMAL SYSTEM [Concomitant]
     Active Substance: FENTANYL
     Dates: start: 20200511
  11. ROCURONIUM 10M/ML INFUSION [Concomitant]
     Dates: start: 20200511
  12. VANCOMYCIN [Concomitant]
     Active Substance: VANCOMYCIN
     Dates: start: 20200512
  13. REMDESIVIR. [Suspect]
     Active Substance: REMDESIVIR
     Indication: COVID-19
     Route: 040
     Dates: start: 20200513, end: 20200516

REACTIONS (1)
  - Alanine aminotransferase increased [None]

NARRATIVE: CASE EVENT DATE: 20200516
